FAERS Safety Report 16206333 (Version 1)
Quarter: 2019Q2

REPORT INFORMATION
  Report Type: Spontaneous
  Country: US (occurrence: US)
  Receive Date: 20190416
  Receipt Date: 20190416
  Transmission Date: 20190711
  Serious: Yes (Life-Threatening, Hospitalization)
  Sender: FDA-Public Use
  Company Number: None

PATIENT
  Age: 76 Year
  Sex: Female

DRUGS (7)
  1. LABETOL [Concomitant]
     Active Substance: LABETALOL HYDROCHLORIDE
  2. CLONODINE [Concomitant]
     Active Substance: CLONIDINE
  3. PRINIVIL [Suspect]
     Active Substance: LISINOPRIL
  4. CRESTOR [Concomitant]
     Active Substance: ROSUVASTATIN CALCIUM
  5. IISINOPRIL, 5 MG [Suspect]
     Active Substance: LISINOPRIL
     Indication: HYPERTENSION
     Dosage: ?          QUANTITY:1 TABLET(S);?
     Route: 048
  6. ZESTRIL [Suspect]
     Active Substance: LISINOPRIL
  7. DILTIAZEM. [Concomitant]
     Active Substance: DILTIAZEM

REACTIONS (4)
  - Throat tightness [None]
  - Feeling abnormal [None]
  - Arthropod bite [None]
  - Swollen tongue [None]

NARRATIVE: CASE EVENT DATE: 20190228
